FAERS Safety Report 24151070 (Version 2)
Quarter: 2024Q3

REPORT INFORMATION
  Report Type: Spontaneous
  Country: JP (occurrence: JP)
  Receive Date: 20240730
  Receipt Date: 20240823
  Transmission Date: 20241016
  Serious: Yes (Other)
  Sender: RANBAXY
  Company Number: JP-SUN PHARMACEUTICAL INDUSTRIES LTD-2024RR-459890

PATIENT
  Age: 53 Year
  Sex: Male

DRUGS (3)
  1. OXALIPLATIN [Suspect]
     Active Substance: OXALIPLATIN
     Indication: Colon cancer
     Dosage: 85 MILLIGRAM PER CUBIC METRE
     Route: 040
     Dates: start: 202302
  2. FLUOROURACIL [Suspect]
     Active Substance: FLUOROURACIL
     Indication: Colon cancer
     Dosage: 400 MILLIGRAM PER CUBIC METRE
     Route: 040
     Dates: start: 202302
  3. LEUCOVORIN [Suspect]
     Active Substance: LEUCOVORIN\LEUCOVORIN CALCIUM
     Indication: Colon cancer
     Dosage: 2400 MILLIGRAM PER CUBIC METRE
     Route: 040
     Dates: start: 202302

REACTIONS (4)
  - Memory impairment [Recovering/Resolving]
  - Drug ineffective [Unknown]
  - Disease progression [Unknown]
  - Disorientation [Recovering/Resolving]
